FAERS Safety Report 8826070 (Version 2)
Quarter: 2012Q4

REPORT INFORMATION
  Report Type: 
  Country: BR (occurrence: BR)
  Receive Date: 20121005
  Receipt Date: 20121205
  Transmission Date: 20130627
  Serious: Yes (Other)
  Sender: FDA-Public Use
  Company Number: BR-BAYER-2012-103517

PATIENT
  Age: 49 Year
  Sex: Male

DRUGS (1)
  1. LEVITRA [Suspect]
     Dosage: UNK
     Route: 048
     Dates: start: 2011

REACTIONS (4)
  - Arrhythmia [Recovered/Resolved]
  - Atrioventricular block [Recovered/Resolved]
  - Ventricular extrasystoles [Recovered/Resolved]
  - Heart sounds abnormal [Recovered/Resolved]
